FAERS Safety Report 24636836 (Version 2)
Quarter: 2025Q2

REPORT INFORMATION
  Report Type: Spontaneous
  Country: US (occurrence: US)
  Receive Date: 20241119
  Receipt Date: 20250607
  Transmission Date: 20250716
  Serious: No
  Sender: COHERUS
  Company Number: US Coherus Biosciences Inc.- 2024-COH-US000823

PATIENT

DRUGS (6)
  1. UDENYCA [Suspect]
     Active Substance: PEGFILGRASTIM-CBQV
     Indication: Product used for unknown indication
     Dosage: 6 MG/0.6 ML, Q3WEEKS
     Route: 058
     Dates: start: 20240514, end: 20240514
  2. UDENYCA [Suspect]
     Active Substance: PEGFILGRASTIM-CBQV
     Dosage: 6 MG/0.6 ML, Q3WEEKS
     Route: 058
     Dates: start: 20240622, end: 20240622
  3. UDENYCA [Suspect]
     Active Substance: PEGFILGRASTIM-CBQV
     Dosage: 6 MG/0.6 ML, Q3WEEKS
     Route: 058
     Dates: start: 20240705, end: 20240705
  4. UDENYCA [Suspect]
     Active Substance: PEGFILGRASTIM-CBQV
     Dosage: 6 MG/0.6 ML, Q3WEEKS
     Route: 058
     Dates: start: 20240720, end: 20240720
  5. UDENYCA [Suspect]
     Active Substance: PEGFILGRASTIM-CBQV
     Dosage: 6 MG/0.6 ML, Q3WEEKS
     Route: 058
     Dates: start: 20240803, end: 20240803
  6. UDENYCA [Suspect]
     Active Substance: PEGFILGRASTIM-CBQV
     Dosage: 6 MG/0.6 ML, Q3WEEKS
     Route: 058
     Dates: start: 20240906

REACTIONS (1)
  - Device malfunction [Recovered/Resolved]

NARRATIVE: CASE EVENT DATE: 20240514
